FAERS Safety Report 10800677 (Version 1)
Quarter: 2015Q1

REPORT INFORMATION
  Report Type: Spontaneous
  Country: FR (occurrence: FR)
  Receive Date: 20150216
  Receipt Date: 20150216
  Transmission Date: 20150721
  Serious: Yes (Hospitalization)
  Sender: FDA-Public Use
  Company Number: FR-BRISTOL-MYERS SQUIBB COMPANY-21645676

PATIENT
  Age: 94 Year
  Sex: Male
  Weight: 57 kg

DRUGS (2)
  1. CARDENSIEL [Suspect]
     Active Substance: BISOPROLOL FUMARATE
     Indication: ATRIAL FIBRILLATION
     Dosage: 1.25 MG, UNK
     Route: 065
     Dates: start: 20141021
  2. COUMADIN [Suspect]
     Active Substance: WARFARIN SODIUM
     Indication: ATRIAL FIBRILLATION
     Dosage: SCORED TAB 2MG
     Route: 048
     Dates: start: 20141021, end: 20141030

REACTIONS (3)
  - Haemorrhagic anaemia [Recovered/Resolved with Sequelae]
  - Renal failure [Recovered/Resolved with Sequelae]
  - Traumatic haematoma [Recovered/Resolved with Sequelae]

NARRATIVE: CASE EVENT DATE: 20141023
